FAERS Safety Report 4675160-8 (Version None)
Quarter: 2005Q2

REPORT INFORMATION
  Report Type: 
  Country: None (occurrence: None)
  Receive Date: 20050526
  Receipt Date: 20050512
  Transmission Date: 20051028
  Serious: Yes (Other)
  Sender: FDA-Public Use
  Company Number: 2005074298

PATIENT
  Age: 41 Year
  Sex: Male
  Weight: 72.5755 kg

DRUGS (1)
  1. BEXTRA [Suspect]
     Indication: BACK PAIN
     Dosage: 20 MG (20 MG, 1 IN 1 D), ORAL
     Route: 048
     Dates: start: 20040101, end: 20041201

REACTIONS (14)
  - BLISTER [None]
  - CEREBROVASCULAR ACCIDENT [None]
  - CHEST PAIN [None]
  - CLUBBING [None]
  - DEPRESSION [None]
  - DRY SKIN [None]
  - FALL [None]
  - HYPERHIDROSIS [None]
  - PARALYSIS [None]
  - PHOTOSENSITIVITY REACTION [None]
  - PRURITUS [None]
  - SKIN DISCOLOURATION [None]
  - SKIN EXFOLIATION [None]
  - SLEEP APNOEA SYNDROME [None]
